FAERS Safety Report 9777996 (Version 1)
Quarter: 2013Q4

REPORT INFORMATION
  Report Type: Spontaneous
  Country: HR (occurrence: HR)
  Receive Date: 20131223
  Receipt Date: 20131223
  Transmission Date: 20140711
  Serious: Yes (Hospitalization)
  Sender: FDA-Public Use
  Company Number: HR-TEVA-451169ISR

PATIENT
  Age: 4 Year
  Sex: Female
  Weight: 19 kg

DRUGS (8)
  1. DIFETOIN [Suspect]
     Indication: EPILEPSY
     Route: 048
     Dates: start: 20131016, end: 20131114
  2. DEPAKINE CHRONO [Suspect]
     Indication: EPILEPSY
     Route: 048
     Dates: start: 20131010, end: 20131113
  3. RIVOTRIL [Suspect]
     Indication: EPILEPSY
     Route: 048
     Dates: start: 20131018
  4. MEDROL [Suspect]
     Route: 048
     Dates: start: 20131028
  5. CEFTRIAKSON [Suspect]
     Indication: BACTERAEMIA
     Dosage: 1500 MILLIGRAM DAILY;
     Route: 042
     Dates: start: 20131104, end: 20131105
  6. AZITROMICINA [Concomitant]
     Route: 065
     Dates: start: 20131106, end: 20131109
  7. SOLU-MEDROL [Concomitant]
     Route: 042
     Dates: start: 20131022, end: 20131027
  8. VIROLEX [Concomitant]
     Dosage: 600 MILLIGRAM DAILY;
     Route: 065
     Dates: start: 20131018, end: 20131027

REACTIONS (11)
  - Rash maculo-papular [Recovering/Resolving]
  - Aphthous stomatitis [Recovering/Resolving]
  - Genital ulceration [Recovering/Resolving]
  - Eyelid oedema [Recovered/Resolved]
  - Lip oedema [Recovered/Resolved]
  - Pyrexia [Recovered/Resolved]
  - Eosinophil percentage increased [Unknown]
  - Alanine aminotransferase increased [Unknown]
  - Aspartate aminotransferase increased [Unknown]
  - Gamma-glutamyltransferase increased [Unknown]
  - Blood lactate dehydrogenase increased [Unknown]
